FAERS Safety Report 25594186 (Version 1)
Quarter: 2025Q3

REPORT INFORMATION
  Report Type: Spontaneous
  Country: US (occurrence: US)
  Receive Date: 20250723
  Receipt Date: 20250723
  Transmission Date: 20251021
  Serious: No
  Sender: BRISTOL-MYERS SQUIBB COMPANY
  Company Number: US-BRISTOL-MYERS SQUIBB COMPANY-2025-101504

PATIENT
  Age: 75 Year
  Sex: Female

DRUGS (4)
  1. ORENCIA [Suspect]
     Active Substance: ABATACEPT
     Indication: Spinal osteoarthritis
     Route: 058
     Dates: start: 202302
  2. ORENCIA [Suspect]
     Active Substance: ABATACEPT
     Indication: Rheumatic fever
  3. ORENCIA [Suspect]
     Active Substance: ABATACEPT
     Indication: Autoimmune hepatitis
  4. ORENCIA [Suspect]
     Active Substance: ABATACEPT
     Indication: Panic disorder

REACTIONS (3)
  - Liquid product physical issue [Unknown]
  - Off label use [Unknown]
  - Therapy interrupted [Unknown]
